FAERS Safety Report 9928295 (Version 1)
Quarter: 2014Q1

REPORT INFORMATION
  Report Type: Spontaneous
  Country: US (occurrence: US)
  Receive Date: 20140227
  Receipt Date: 20140227
  Transmission Date: 20141002
  Serious: Yes (Hospitalization)
  Sender: FDA-Public Use
  Company Number: US-NOVOPROD-401182

PATIENT
  Sex: Female

DRUGS (2)
  1. NOVOLOG FLEXPEN [Suspect]
     Indication: PRODUCT USED FOR UNKNOWN INDICATION
     Route: 058
  2. LEVEMIR FLEXPEN [Suspect]
     Indication: PRODUCT USED FOR UNKNOWN INDICATION
     Route: 058

REACTIONS (4)
  - Pneumonia [Unknown]
  - Incorrect product storage [Unknown]
  - Drug ineffective [Unknown]
  - Blood glucose increased [Unknown]
